FAERS Safety Report 9322628 (Version 1)
Quarter: 2013Q2

REPORT INFORMATION
  Report Type: Spontaneous
  Country: CA (occurrence: CA)
  Receive Date: 20130531
  Receipt Date: 20130531
  Transmission Date: 20140414
  Serious: Yes (Other)
  Sender: FDA-Public Use
  Company Number: CA-B.I. PHARMACEUTICALS,INC./RIDGEFIELD-2013-BI-15006GD

PATIENT
  Sex: Female

DRUGS (4)
  1. MIRAPEX [Suspect]
     Indication: RESTLESS LEGS SYNDROME
     Dosage: 0.25 - 0.5 MG
  2. MIRAPEX [Suspect]
     Dosage: AN INCREASED DOSE
  3. DOMPERIDONE [Suspect]
     Indication: NAUSEA
     Dosage: 10 MG
  4. IRON [Suspect]
     Indication: RESTLESS LEGS SYNDROME
     Route: 048

REACTIONS (2)
  - Restless legs syndrome [Recovered/Resolved]
  - Nausea [Unknown]
